FAERS Safety Report 4849923-X (Version None)
Quarter: 2005Q4

REPORT INFORMATION
  Report Type: 
  Country: None (occurrence: None)
  Receive Date: 20051114
  Receipt Date: 20050728
  Transmission Date: 20060501
  Serious: Yes (Other)
  Sender: FDA-Public Use
  Company Number: 2005BH000985

PATIENT
  Age: 39 Year
  Sex: Female

DRUGS (1)
  1. PROMETHAZINE [Suspect]
     Dosage: IV
     Route: 042
     Dates: start: 20050601

REACTIONS (2)
  - FINGER AMPUTATION [None]
  - INJECTION SITE EXTRAVASATION [None]
